FAERS Safety Report 10483661 (Version 1)
Quarter: 2014Q3

REPORT INFORMATION
  Report Type: Spontaneous
  Country: US (occurrence: US)
  Receive Date: 20140930
  Receipt Date: 20140930
  Transmission Date: 20150326
  Serious: Yes (Hospitalization, Other)
  Sender: FDA-Public Use
  Company Number: US-SUN PHARMACEUTICAL INDUSTRIES LTD-2014SUN02188

PATIENT

DRUGS (2)
  1. CLONAZEPAM. [Concomitant]
     Active Substance: CLONAZEPAM
     Indication: GENERALISED ANXIETY DISORDER
     Route: 065
  2. VENLAFAXINE HYDROCHLORIDE EXTENDED- RELEASE TABS 37.5MG [Suspect]
     Active Substance: VENLAFAXINE HYDROCHLORIDE
     Dosage: 225 MG, 10-15 PILLS PER DAY
     Route: 048

REACTIONS (5)
  - Euphoric mood [Unknown]
  - Intentional overdose [Unknown]
  - Wrong technique in drug usage process [Unknown]
  - Drug abuse [Unknown]
  - Drug dependence [Unknown]
